FAERS Safety Report 8963163 (Version 3)
Quarter: 2013Q2

REPORT INFORMATION
  Report Type: Report from Study
  Country: DE (occurrence: DE)
  Receive Date: 20121213
  Receipt Date: 20130415
  Transmission Date: 20140414
  Serious: Yes (Hospitalization, Other)
  Sender: FDA-Public Use
  Company Number: PHHY2012DE091679

PATIENT
  Sex: Female
  Weight: 52 kg

DRUGS (5)
  1. FTY 720 [Suspect]
     Indication: MULTIPLE SCLEROSIS
     Dosage: 0.5 MG, QD
     Route: 048
     Dates: start: 20110926
  2. THYRONAJOD [Concomitant]
     Dosage: 125 MG, UNK
     Dates: start: 2002
  3. NEO-EUNOMIN [Concomitant]
     Dosage: 1 DF, UNK
     Dates: start: 2009
  4. PARACETAMOL [Concomitant]
     Indication: PAIN
     Dosage: 500 MG, PRN
     Dates: start: 201201
  5. ANAESTHETICS [Concomitant]
     Dates: start: 20120717, end: 20120717

REACTIONS (5)
  - Cervical dysplasia [Recovered/Resolved]
  - Cardiovascular disorder [Recovered/Resolved]
  - Dizziness [Recovered/Resolved]
  - Nausea [Recovered/Resolved]
  - Pain [Recovering/Resolving]
